FAERS Safety Report 14114404 (Version 3)
Quarter: 2017Q4

REPORT INFORMATION
  Report Type: Spontaneous
  Country: US (occurrence: US)
  Receive Date: 20171023
  Receipt Date: 20171114
  Transmission Date: 20180321
  Serious: No
  Sender: FDA-Public Use
  Company Number: US-PFIZER INC-2017456260

PATIENT
  Age: 59 Year
  Sex: Female

DRUGS (1)
  1. SUTENT [Suspect]
     Active Substance: SUNITINIB MALATE
     Indication: RENAL CANCER
     Dosage: 50 MG, CYCLIC (DAILY 28 DAYS ON THEN 14 DAYS OFF)
     Route: 048
     Dates: start: 201709

REACTIONS (11)
  - Mouth ulceration [Unknown]
  - Dry mouth [Unknown]
  - Throat tightness [Unknown]
  - Pruritus [Recovered/Resolved]
  - Hypertension [Unknown]
  - Mouth swelling [Unknown]
  - Headache [Unknown]
  - Arthralgia [Unknown]
  - Condition aggravated [Unknown]
  - Oral mucosal blistering [Recovered/Resolved]
  - Abdominal pain upper [Recovered/Resolved]

NARRATIVE: CASE EVENT DATE: 2017
